FAERS Safety Report 4906434-0 (Version None)
Quarter: 2006Q1

REPORT INFORMATION
  Report Type: 
  Country: None (occurrence: None)
  Receive Date: 20060206
  Receipt Date: 20060120
  Transmission Date: 20060701
  Serious: Yes (Other)
  Sender: FDA-Public Use
  Company Number: TRP_0691_2006

PATIENT
  Age: 50 Year
  Sex: Male

DRUGS (14)
  1. RIBASPHERE [Suspect]
     Indication: HEPATITIS C
     Dosage: 1200 MG QDAY PO
     Route: 048
     Dates: start: 20050613
  2. INFERGEN/INTERFERON ALFACON-1/INTERMUNE [Suspect]
     Indication: HEPATITIS C
     Dosage: 9 MCG QDAY SC
     Route: 058
     Dates: start: 20050613
  3. INFERGEN/INTERFERON ALFACON-1/INTERMUNE [Suspect]
     Indication: HEPATITIS C
     Dosage: 6 MCG QDAY SC
     Route: 058
  4. LOTREL [Concomitant]
  5. TOPROL-XL [Concomitant]
  6. CALCIUM WITH VITAMIN D [Concomitant]
  7. MILK THISTLE [Concomitant]
  8. M.V.I. [Concomitant]
  9. TYLENOL [Concomitant]
  10. NEXIUM [Concomitant]
  11. COMPAZINE [Concomitant]
  12. BENADRYL [Concomitant]
  13. TUMS [Concomitant]
  14. L-LYSINE [Concomitant]

REACTIONS (1)
  - NEUTROPHIL COUNT DECREASED [None]
